FAERS Safety Report 16682775 (Version 1)
Quarter: 2019Q3

REPORT INFORMATION
  Report Type: Report from Study
  Country: US (occurrence: US)
  Receive Date: 20190808
  Receipt Date: 20190808
  Transmission Date: 20191004
  Serious: Yes (Other)
  Sender: FDA-Public Use
  Company Number: US-ROCHE-2370317

PATIENT
  Sex: Male
  Weight: 37.2 kg

DRUGS (1)
  1. NUTROPIN [Suspect]
     Active Substance: SOMATROPIN
     Indication: BODY HEIGHT BELOW NORMAL
     Route: 058

REACTIONS (6)
  - Insomnia [Unknown]
  - Decreased appetite [Unknown]
  - Seizure [Unknown]
  - Sleep apnoea syndrome [Unknown]
  - Fatigue [Unknown]
  - Attention deficit/hyperactivity disorder [Unknown]
